FAERS Safety Report 10580707 (Version 3)
Quarter: 2014Q4

REPORT INFORMATION
  Report Type: Spontaneous
  Country: CA (occurrence: CA)
  Receive Date: 20141113
  Receipt Date: 20141204
  Transmission Date: 20150529
  Serious: Yes (Other)
  Sender: FDA-Public Use
  Company Number: CA-ROCHE-1488285

PATIENT
  Age: 22 Year
  Sex: Female

DRUGS (6)
  1. ADVAIR HFA [Concomitant]
     Active Substance: FLUTICASONE PROPIONATE\SALMETEROL XINAFOATE
     Route: 065
  2. CIPRALEX [Concomitant]
     Active Substance: ESCITALOPRAM OXALATE
  3. REACTINE (CETIRIZINE HYDROCHLORIDE) [Concomitant]
     Active Substance: CETIRIZINE HYDROCHLORIDE
  4. XOLAIR [Suspect]
     Active Substance: OMALIZUMAB
     Indication: ASTHMA
     Route: 058
     Dates: start: 20140819, end: 20141119
  5. VENTOLIN [Concomitant]
     Active Substance: ALBUTEROL SULFATE
  6. SULFASALAZINE. [Concomitant]
     Active Substance: SULFASALAZINE

REACTIONS (17)
  - Middle insomnia [Unknown]
  - Asthma [Not Recovered/Not Resolved]
  - Blood disorder [Unknown]
  - Syncope [Unknown]
  - Bone disorder [Unknown]
  - Arthropathy [Unknown]
  - Injection site bruising [Unknown]
  - Malaise [Unknown]
  - Dyspnoea [Unknown]
  - Cardiac disorder [Unknown]
  - Arthralgia [Unknown]
  - Systemic lupus erythematosus [Not Recovered/Not Resolved]
  - Postural orthostatic tachycardia syndrome [Not Recovered/Not Resolved]
  - Rheumatoid arthritis [Not Recovered/Not Resolved]
  - Dizziness [Recovering/Resolving]
  - Injection site pain [Unknown]
  - Tonsillitis [Unknown]

NARRATIVE: CASE EVENT DATE: 20140819
